FAERS Safety Report 14641056 (Version 1)
Quarter: 2018Q1

REPORT INFORMATION
  Report Type: Spontaneous
  Country: ES (occurrence: ES)
  Receive Date: 20180315
  Receipt Date: 20180315
  Transmission Date: 20180509
  Serious: Yes (Hospitalization, Other)
  Sender: FDA-Public Use
  Company Number: ES-AUROBINDO-AUR-APL-2018-013577

PATIENT
  Age: 66 Year
  Sex: Male

DRUGS (13)
  1. DEXKETOPROFEN [Concomitant]
     Active Substance: DEXKETOPROFEN
     Indication: PRODUCT USED FOR UNKNOWN INDICATION
     Dosage: AT 25 MG (1 AT BREAKFAST, 1 AT LUNCH, 1 AT DINNER ), AS NEEDED
     Route: 048
  2. SEPTRIN [Suspect]
     Active Substance: SULFAMETHOXAZOLE\TRIMETHOPRIM
     Indication: ANTIFUNGAL PROPHYLAXIS
     Dosage: UNK UNK, 1X/DAY
     Route: 048
  3. VALGANCICLOVIR. [Suspect]
     Active Substance: VALGANCICLOVIR
     Indication: ANTIVIRAL PROPHYLAXIS
     Dosage: 900 MG, 1X/DAY (AT LUNCH TIME)
     Route: 048
     Dates: start: 20170707
  4. PROGRAF [Suspect]
     Active Substance: TACROLIMUS\TACROLIMUS ANHYDROUS
     Indication: IMMUNOSUPPRESSANT DRUG THERAPY
     Dosage: 5 MILLIGRAM, ONCE A DAY(5 MG, 2X/DAY (1 IN THE MORNING AND 1 BEFORE DINNER)
     Route: 048
     Dates: start: 20170704
  5. OMEPRAZOLE. [Concomitant]
     Active Substance: OMEPRAZOLE
     Indication: PRODUCT USED FOR UNKNOWN INDICATION
     Dosage: 20 MG, 1X/DAY (AT BREAKFAST)
     Route: 048
  6. ZITROMAX [Suspect]
     Active Substance: AZITHROMYCIN
     Indication: IMMUNOMODULATORY THERAPY
     Dosage: 250 MILLIGRAM(250 MG, AT LUNCH TIME EVERY 48 HOURS )
     Route: 048
     Dates: start: 20170801
  7. LORAZEPAM. [Concomitant]
     Active Substance: LORAZEPAM
     Indication: PRODUCT USED FOR UNKNOWN INDICATION
     Dosage: 1 MG, 1X/DAY (AT BEDTIME)
     Route: 048
  8. CELLCEPT [Suspect]
     Active Substance: MYCOPHENOLATE MOFETIL\MYCOPHENOLATE MOFETIL HYDROCHLORIDE
     Indication: PRODUCT USED FOR UNKNOWN INDICATION
     Dosage: 500 MG, 4X/DAY
     Route: 048
  9. PREDNISONE. [Suspect]
     Active Substance: PREDNISONE
     Indication: IMMUNOSUPPRESSANT DRUG THERAPY
     Dosage: 30 MG, 2X/DAY (AT BREAKFAST TIME)
     Route: 048
  10. PREDNISONE. [Suspect]
     Active Substance: PREDNISONE
     Dosage: 20 MG, DAILY
     Route: 048
     Dates: start: 20170703
  11. PARACETAMOL [Concomitant]
     Active Substance: ACETAMINOPHEN
     Indication: PRODUCT USED FOR UNKNOWN INDICATION
     Dosage: AT 500 MG (2 AT BREAKFAST, 2 AT LUNCH, 2 AT DINNER), AS NEEDED
     Route: 048
  12. ABELCET [Concomitant]
     Active Substance: AMPHOTERICIN B\DIMYRISTOYLPHOSPHATIDYLCHOLINE, DL-\DIMYRISTOYLPHOSPHATIDYLGLYCEROL, DL-
     Indication: PRODUCT USED FOR UNKNOWN INDICATION
     Dosage: 50 MG, WEEKLY (ON MONDAYS IN THE AFTERNOON)
     Route: 055
  13. VITAMIN D [Concomitant]
     Active Substance: CHOLECALCIFEROL
     Indication: PRODUCT USED FOR UNKNOWN INDICATION
     Dosage: UNK, 2X/DAY
     Route: 048

REACTIONS (9)
  - Hypoaesthesia [Unknown]
  - Gait disturbance [Unknown]
  - Myalgia [Unknown]
  - Pyrexia [Not Recovered/Not Resolved]
  - Large intestinal ulcer [Unknown]
  - Flank pain [Unknown]
  - Bone pain [Unknown]
  - Paraesthesia [Unknown]
  - Fatigue [Unknown]

NARRATIVE: CASE EVENT DATE: 2017
